FAERS Safety Report 4736433-3 (Version None)
Quarter: 2005Q3

REPORT INFORMATION
  Report Type: 
  Country: None (occurrence: None)
  Receive Date: 20050802
  Receipt Date: 20050719
  Transmission Date: 20060218
  Serious: Yes (Hospitalization)
  Sender: FDA-Public Use
  Company Number: 11902

PATIENT
  Age: 6 Year
  Sex: Male

DRUGS (2)
  1. METHOTREXATE [Suspect]
     Indication: RHEUMATOID ARTHRITIS
     Dosage: 7.5 MG WEEKLY / 12.5 MG WEEKLY
     Route: 058
     Dates: start: 19980818, end: 19981028
  2. METHOTREXATE [Suspect]
     Indication: RHEUMATOID ARTHRITIS
     Dosage: 7.5 MG WEEKLY / 12.5 MG WEEKLY
     Route: 058
     Dates: start: 19981019

REACTIONS (10)
  - ABDOMINAL PAIN [None]
  - ANAEMIA [None]
  - CONDITION AGGRAVATED [None]
  - DIZZINESS [None]
  - DYSPEPSIA [None]
  - JUVENILE ARTHRITIS [None]
  - NAUSEA [None]
  - PYREXIA [None]
  - STOMACH DISCOMFORT [None]
  - VOMITING [None]
